FAERS Safety Report 6542357-1 (Version None)
Quarter: 2010Q1

REPORT INFORMATION
  Report Type: 
  Country: None (occurrence: None)
  Receive Date: 20100114
  Receipt Date: 20100114
  Transmission Date: 20100710
  Serious: Yes (Hospitalization, Other)
  Sender: FDA-Public Use
  Company Number: None

PATIENT
  Age: 47 Year
  Sex: Female
  Weight: 65.7716 kg

DRUGS (1)
  1. CHANTIX [Suspect]
     Indication: SMOKING CESSATION THERAPY
     Dosage: 0.5 MG 1X/DAY FOR 3 DAYS PO
     Route: 048
     Dates: start: 20100105, end: 20100112

REACTIONS (7)
  - ABDOMINAL PAIN UPPER [None]
  - BACK PAIN [None]
  - GAIT DISTURBANCE [None]
  - GROIN PAIN [None]
  - IMPAIRED WORK ABILITY [None]
  - LACRIMATION INCREASED [None]
  - PAIN [None]
